FAERS Safety Report 8074449-2 (Version None)
Quarter: 2012Q1

REPORT INFORMATION
  Report Type: 
  Country: None (occurrence: None)
  Receive Date: 20120120
  Receipt Date: 20120112
  Transmission Date: 20120608
  Serious: Yes (Death)
  Sender: FDA-Public Use
  Company Number: WAES 1201USA01989

PATIENT
  Age: 73 Year
  Sex: Female

DRUGS (8)
  1. PEPCID [Concomitant]
  2. PREDNISOLONE [Concomitant]
  3. THEO-DUR [Concomitant]
  4. ADVAIR DISKUS 100/50 [Concomitant]
  5. HALCION [Concomitant]
  6. JANUVIA [Suspect]
     Indication: TYPE 2 DIABETES MELLITUS
     Dosage: 50 MG, DAILY, PO
     Route: 048
     Dates: start: 20110106
  7. BISOLVON [Concomitant]
  8. MEPTIN [Concomitant]

REACTIONS (3)
  - SUDDEN DEATH [None]
  - ASTHMA [None]
  - BLOOD GLUCOSE INCREASED [None]
